FAERS Safety Report 25135472 (Version 2)
Quarter: 2025Q2

REPORT INFORMATION
  Report Type: Spontaneous
  Country: CA (occurrence: CA)
  Receive Date: 20250328
  Receipt Date: 20250411
  Transmission Date: 20250717
  Serious: Yes (Hospitalization, Other)
  Sender: BAYER
  Company Number: CA-BAYER-2025A037851

PATIENT
  Age: 7 Year
  Sex: Male

DRUGS (2)
  1. ALEVE [Suspect]
     Active Substance: NAPROXEN SODIUM
     Indication: Juvenile idiopathic arthritis
     Dosage: 250 MG, BID
     Route: 065
  2. ADVIL [Concomitant]
     Active Substance: IBUPROFEN
     Indication: Juvenile idiopathic arthritis
     Dosage: UNK UNK, TID
     Route: 065

REACTIONS (10)
  - Hypophagia [Unknown]
  - Iron deficiency [Unknown]
  - Microcytic anaemia [Unknown]
  - Gastrointestinal haemorrhage [Unknown]
  - Drug effect less than expected [Unknown]
  - Temporomandibular pain and dysfunction syndrome [Unknown]
  - Micrognathia [Unknown]
  - Dermoid cyst [Unknown]
  - Feeding disorder [Unknown]
  - Iron deficiency anaemia [Unknown]
